FAERS Safety Report 20593115 (Version 1)
Quarter: 2022Q1

REPORT INFORMATION
  Report Type: Spontaneous
  Country: CN (occurrence: CN)
  Receive Date: 20220315
  Receipt Date: 20220315
  Transmission Date: 20220424
  Serious: Yes (Other)
  Sender: FDA-Public Use
  Company Number: CN-BEH-2022143077

PATIENT
  Age: 40 Year
  Sex: Female
  Weight: 60 kg

DRUGS (3)
  1. ALBURX [Suspect]
     Active Substance: ALBUMIN HUMAN
     Indication: Blood albumin abnormal
     Dosage: 10 GRAM [20 G ALSO REPORTED], QD
     Route: 041
     Dates: start: 20220215, end: 20220215
  2. ALBURX [Suspect]
     Active Substance: ALBUMIN HUMAN
     Indication: Supplementation therapy
  3. ULINASTATIN [Suspect]
     Active Substance: ULINASTATIN
     Indication: Circulatory collapse
     Dosage: 100000 INTERNATIONAL UNIT, QD
     Route: 050
     Dates: start: 20220215, end: 20220215

REACTIONS (6)
  - Macule [Recovering/Resolving]
  - Chest discomfort [Recovering/Resolving]
  - Dyspnoea [Recovering/Resolving]
  - Macule [Recovering/Resolving]
  - Chest discomfort [Recovering/Resolving]
  - Dyspnoea [Recovering/Resolving]

NARRATIVE: CASE EVENT DATE: 20220215
